FAERS Safety Report 7043792-8 (Version None)
Quarter: 2010Q4

REPORT INFORMATION
  Report Type: 
  Country: None (occurrence: None)
  Receive Date: 20101008
  Receipt Date: 20101008
  Transmission Date: 20110411
  Serious: Yes (Other)
  Sender: FDA-Public Use
  Company Number: None

PATIENT
  Sex: Female
  Weight: 88.4514 kg

DRUGS (2)
  1. ZOLPIDEM [Suspect]
     Indication: INSOMNIA
     Dosage: 10 MG 1 1/2 TAB. BED TIME
     Dates: start: 20100820, end: 20100831
  2. ZOLPIDEM [Suspect]
     Indication: INSOMNIA
     Dosage: 10 MG 1 1/2 TAB. BED TIME
     Dates: start: 20100921, end: 20101021

REACTIONS (2)
  - DRUG INEFFECTIVE [None]
  - PRODUCT COUNTERFEIT [None]
